FAERS Safety Report 4878565-5 (Version None)
Quarter: 2005Q4

REPORT INFORMATION
  Report Type: 
  Country: None (occurrence: None)
  Receive Date: 20051209
  Receipt Date: 20050502
  Transmission Date: 20060501
  Serious: Yes (Other)
  Sender: FDA-Public Use
  Company Number: USA-2005-0020122

PATIENT
  Sex: Male

DRUGS (2)
  1. OXYCODONE HCL [Suspect]
     Route: 065
  2. METHADONE (METHADONE) [Suspect]
     Route: 065

REACTIONS (1)
  - POLYSUBSTANCE ABUSE [None]
